FAERS Safety Report 12978193 (Version 1)
Quarter: 2016Q4

REPORT INFORMATION
  Report Type: Spontaneous
  Country: DE (occurrence: DE)
  Receive Date: 20161128
  Receipt Date: 20161128
  Transmission Date: 20170207
  Serious: Yes (Other)
  Sender: FDA-Public Use
  Company Number: DE-TEVA-707984GER

PATIENT
  Age: 18 Year
  Sex: Female
  Weight: 50 kg

DRUGS (2)
  1. MCP [Suspect]
     Active Substance: METOCLOPRAMIDE HYDROCHLORIDE
     Indication: NAUSEA
  2. MCP [Suspect]
     Active Substance: METOCLOPRAMIDE HYDROCHLORIDE
     Indication: MIGRAINE
     Dosage: 3 DOSAGE FORMS DAILY;
     Route: 048
     Dates: start: 20161011, end: 20161012

REACTIONS (5)
  - Dyskinesia [Unknown]
  - Muscle spasms [Unknown]
  - Gaze palsy [Unknown]
  - Anxiety [Unknown]
  - Dysphagia [Unknown]

NARRATIVE: CASE EVENT DATE: 20161012
